FAERS Safety Report 5005040-X (Version None)
Quarter: 2006Q2

REPORT INFORMATION
  Report Type: 
  Country: None (occurrence: None)
  Receive Date: 20060512
  Receipt Date: 20060428
  Transmission Date: 20061013
  Serious: Yes (Hospitalization)
  Sender: FDA-Public Use
  Company Number: S06-FRA-01593-01

PATIENT
  Age: 73 Year
  Sex: Female

DRUGS (14)
  1. SEROPLEX (ESCITALOPRAM) [Suspect]
     Dosage: 20 MG QD PO
     Route: 048
     Dates: start: 20051219, end: 20060131
  2. COVERSYL (PERINDOPRIL) [Suspect]
     Dosage: 4 MG QD PO
     Route: 048
     Dates: start: 20051213, end: 20060205
  3. INEXIUM (ESOMEPRAZOLE) [Suspect]
     Dosage: 20 MG QD PO
     Route: 048
     Dates: start: 20060127, end: 20060131
  4. AMOXICILLIN TRIHYDRATE [Suspect]
     Dosage: 2 UNITS QD PO
     Route: 048
     Dates: start: 20060126, end: 20060131
  5. VASTAREL ^BIOPHARMA^ (TRIMETAZIDINE HYDROCHLORIDE) [Concomitant]
  6. INEXIUM (ESOMEPRAZOLE) [Concomitant]
  7. ZOLPIDEM TARTRATE [Concomitant]
  8. CARVEDILOL [Concomitant]
  9. PRAVASTATIN [Concomitant]
  10. DUPHALAC [Concomitant]
  11. KARDEGIC (ACETYLSALICYLATE LYSINE) [Concomitant]
  12. RISPERDAL [Concomitant]
  13. OMEPRAZOLE [Concomitant]
  14. PEVARYL (ECONAZOLE NITRATE) [Concomitant]

REACTIONS (7)
  - DEHYDRATION [None]
  - DIARRHOEA [None]
  - HYPOKALAEMIA [None]
  - HYPONATRAEMIA [None]
  - MALAISE [None]
  - ORTHOSTATIC HYPOTENSION [None]
  - VOMITING [None]
